FAERS Safety Report 4984264-1 (Version None)
Quarter: 2006Q2

REPORT INFORMATION
  Report Type: 
  Country: None (occurrence: None)
  Receive Date: 20060420
  Receipt Date: 20060407
  Transmission Date: 20061013
  Serious: Yes (Other)
  Sender: FDA-Public Use
  Company Number: 2006042670

PATIENT
  Age: 69 Year
  Sex: Male
  Weight: 89 kg

DRUGS (9)
  1. CELEBREX [Suspect]
     Indication: ILL-DEFINED DISORDER
     Dosage: 200 MG (1 IN 1 D),
     Dates: start: 20020501, end: 20060303
  2. METFORMIN [Concomitant]
  3. GLIMEPIRIDE [Concomitant]
  4. FLUINDIONE (FLUINDIONE) [Concomitant]
  5. COAPROVEL (HYDROCHLOROTHIAZIDE, IRBESARTAN) [Concomitant]
  6. DILTIAZEM [Concomitant]
  7. PRAZOSIN GITS [Concomitant]
  8. SIMVASTATIN [Concomitant]
  9. CORDARONE [Concomitant]

REACTIONS (4)
  - ATRIAL FIBRILLATION [None]
  - BRAIN NATRIURETIC PEPTIDE INCREASED [None]
  - CARDIAC FAILURE CONGESTIVE [None]
  - HYPERNATRAEMIA [None]
